FAERS Safety Report 7478333-4 (Version None)
Quarter: 2011Q2

REPORT INFORMATION
  Report Type: 
  Country: None (occurrence: None)
  Receive Date: 20110513
  Receipt Date: 20110504
  Transmission Date: 20111010
  Serious: Yes (Hospitalization)
  Sender: FDA-Public Use
  Company Number: RU-SANOFI-AVENTIS-2011SA011881

PATIENT
  Age: 56 Year
  Sex: Female
  Weight: 80 kg

DRUGS (16)
  1. ARAVA [Suspect]
     Route: 048
     Dates: end: 20110101
  2. HYDROCORTISONE [Concomitant]
     Route: 030
     Dates: start: 20110101, end: 20110201
  3. ARAVA [Suspect]
     Indication: ANKYLOSING SPONDYLITIS
     Route: 048
     Dates: end: 20070101
  4. ARAVA [Suspect]
     Route: 048
     Dates: start: 20100401
  5. ARAVA [Suspect]
     Route: 065
     Dates: start: 20110401
  6. MOVALIS [Concomitant]
     Route: 048
     Dates: start: 20110101
  7. SIRDALUD [Concomitant]
     Route: 048
     Dates: start: 20110101
  8. ENAP [Concomitant]
     Route: 048
     Dates: start: 20110101
  9. NOVOCAIN [Concomitant]
     Dates: start: 20110101, end: 20110201
  10. OMEPRAZOLE [Concomitant]
     Route: 048
     Dates: start: 20110101
  11. LEVOTHYROXINE SODIUM [Concomitant]
     Route: 048
     Dates: start: 20110101
  12. KETONAL [Concomitant]
     Route: 030
     Dates: start: 20110101, end: 20110201
  13. DIPROSPAN [Concomitant]
     Route: 014
     Dates: start: 20110101, end: 20110201
  14. POTASSIUM IODIDE [Concomitant]
     Dates: start: 20110101, end: 20110201
  15. ARAVA [Suspect]
     Route: 048
     Dates: start: 20100401, end: 20100401
  16. LIDOCAINE [Concomitant]
     Route: 030
     Dates: start: 20110101, end: 20110201

REACTIONS (2)
  - PRODUCT COUNTERFEIT [None]
  - HEPATIC ENZYME INCREASED [None]
